FAERS Safety Report 18203998 (Version 12)
Quarter: 2025Q2

REPORT INFORMATION
  Report Type: Report from Study
  Country: US (occurrence: US)
  Receive Date: 20200827
  Receipt Date: 20250523
  Transmission Date: 20250716
  Serious: Yes (Hospitalization, Other)
  Sender: TAKEDA
  Company Number: US-SHIRE-US202027853

PATIENT
  Age: 68 Year
  Sex: Female
  Weight: 78 kg

DRUGS (45)
  1. HUMAN IMMUNOGLOBULIN G [Suspect]
     Active Substance: HUMAN IMMUNOGLOBULIN G
     Indication: Immunodeficiency common variable
     Dosage: 25 GRAM, Q4WEEKS
     Dates: start: 20190703
  2. HUMAN IMMUNOGLOBULIN G [Suspect]
     Active Substance: HUMAN IMMUNOGLOBULIN G
     Dosage: 6 GRAM, 1/WEEK
  3. TRAMADOL [Concomitant]
     Active Substance: TRAMADOL
  4. VENTOLIN HFA [Concomitant]
     Active Substance: ALBUTEROL SULFATE
  5. IMITREX [Concomitant]
     Active Substance: SUMATRIPTAN SUCCINATE
  6. CRANBERRY [Concomitant]
     Active Substance: CRANBERRY
  7. Ocuvite lutein plus [Concomitant]
  8. ACETAMINOPHEN [Concomitant]
     Active Substance: ACETAMINOPHEN
  9. DIPHENHYDRAMINE [Concomitant]
     Active Substance: DIPHENHYDRAMINE
  10. HEPARIN [Concomitant]
     Active Substance: HEPARIN SODIUM
  11. SODIUM CHLORIDE [Concomitant]
     Active Substance: SODIUM CHLORIDE
     Indication: Product used for unknown indication
  12. EPINEPHRINE [Concomitant]
     Active Substance: EPINEPHRINE
  13. ZOLPIDEM [Concomitant]
     Active Substance: ZOLPIDEM TARTRATE
  14. ESTRACE [Concomitant]
     Active Substance: ESTRADIOL
  15. OXYGEN [Concomitant]
     Active Substance: OXYGEN
  16. METFORMIN [Concomitant]
     Active Substance: METFORMIN HYDROCHLORIDE
  17. BREO ELLIPTA [Concomitant]
     Active Substance: FLUTICASONE FUROATE\VILANTEROL TRIFENATATE
  18. GABAPENTIN [Concomitant]
     Active Substance: GABAPENTIN
     Indication: Product used for unknown indication
  19. LEVOTHYROXINE [Concomitant]
     Active Substance: LEVOTHYROXINE
  20. VITAMIN E [Concomitant]
     Active Substance: .ALPHA.-TOCOPHEROL
  21. ROSUVASTATIN [Concomitant]
     Active Substance: ROSUVASTATIN
  22. VITAMIN D3 [Concomitant]
     Active Substance: CHOLECALCIFEROL
  23. TOPIRAMATE [Concomitant]
     Active Substance: TOPIRAMATE
  24. CLARITIN [Concomitant]
     Active Substance: LORATADINE
  25. ZYRTEC [Concomitant]
     Active Substance: CETIRIZINE HYDROCHLORIDE
  26. PFIZER-BIONTECH COVID-19 VACCINE [Concomitant]
     Active Substance: TOZINAMERAN
  27. ROSUVASTATIN CALCIUM [Concomitant]
     Active Substance: ROSUVASTATIN CALCIUM
  28. TRAMADOL HCL [Concomitant]
     Active Substance: TRAMADOL HYDROCHLORIDE
  29. ZOLPIDEM TARTRATE [Concomitant]
     Active Substance: ZOLPIDEM TARTRATE
  30. ALBUTEROL SULFATE [Concomitant]
     Active Substance: ALBUTEROL SULFATE
  31. NAPROXEN [Concomitant]
     Active Substance: NAPROXEN
  32. ONDANSETRON HYDROCHLORIDE [Concomitant]
     Active Substance: ONDANSETRON HYDROCHLORIDE
  33. SENOKOT-S [Concomitant]
     Active Substance: DOCUSATE SODIUM\SENNOSIDES
  34. NEULASTA [Concomitant]
     Active Substance: PEGFILGRASTIM
  35. DEXAMETHASONE [Concomitant]
     Active Substance: DEXAMETHASONE
  36. LIDOCAINE [Concomitant]
     Active Substance: LIDOCAINE
  37. PROCHLORPERAZINE MALEATE [Concomitant]
     Active Substance: PROCHLORPERAZINE MALEATE
  38. LOPERAMIDE [Concomitant]
     Active Substance: LOPERAMIDE
  39. DIPHENHYDRAMINE HYDROCHLORIDE [Concomitant]
     Active Substance: DIPHENHYDRAMINE HYDROCHLORIDE
  40. IRON [Concomitant]
     Active Substance: IRON
  41. VITAMIN C [Concomitant]
     Active Substance: ASCORBIC ACID
  42. ELIQUIS [Concomitant]
     Active Substance: APIXABAN
  43. METFORMIN HYDROCHLORIDE [Concomitant]
     Active Substance: METFORMIN HYDROCHLORIDE
  44. Lmx [Concomitant]
  45. XELODA [Concomitant]
     Active Substance: CAPECITABINE

REACTIONS (10)
  - Road traffic accident [Unknown]
  - Post procedural infection [Unknown]
  - Seroma [Unknown]
  - Breast cancer [Unknown]
  - Thrombosis [Unknown]
  - Eye infection [Unknown]
  - Herpes zoster [Unknown]
  - Product dose omission issue [Unknown]
  - Pain [Unknown]
  - Pain in extremity [Unknown]

NARRATIVE: CASE EVENT DATE: 20220810
